FAERS Safety Report 16824321 (Version 2)
Quarter: 2019Q4

REPORT INFORMATION
  Report Type: Report from Study
  Country: CN (occurrence: CN)
  Receive Date: 20190918
  Receipt Date: 20191017
  Transmission Date: 20200122
  Serious: Yes (Other)
  Sender: FDA-Public Use
  Company Number: CN-B.I. PHARMACEUTICALS,INC./RIDGEFIELD-2019-BI-101720

PATIENT
  Age: 60 Year
  Sex: Male

DRUGS (6)
  1. SIFROL [Suspect]
     Active Substance: PRAMIPEXOLE
     Indication: SCHIZOPHRENIA
     Dosage: 0.375 MG/DAY OF PRAMIPEXOLE
     Route: 065
  2. RISPERIDONE. [Concomitant]
     Active Substance: RISPERIDONE
     Indication: AKATHISIA
     Route: 065
  3. CLOZAPINE. [Concomitant]
     Active Substance: CLOZAPINE
     Indication: SCHIZOPHRENIA
     Route: 065
  4. RISPERIDONE. [Concomitant]
     Active Substance: RISPERIDONE
     Indication: SCHIZOPHRENIA
     Route: 065
  5. CLOZAPINE. [Concomitant]
     Active Substance: CLOZAPINE
     Indication: AKATHISIA
  6. SIFROL [Suspect]
     Active Substance: PRAMIPEXOLE
     Indication: AKATHISIA

REACTIONS (2)
  - Suicidal ideation [Recovered/Resolved]
  - Depressed mood [Recovered/Resolved]
